FAERS Safety Report 5669013-6 (Version None)
Quarter: 2008Q1

REPORT INFORMATION
  Report Type: 
  Country: None (occurrence: None)
  Receive Date: 20080312
  Receipt Date: 20080312
  Transmission Date: 20080703
  Serious: No
  Sender: FDA-Public Use
  Company Number: None

PATIENT
  Age: 46 Year
  Sex: Male
  Weight: 77.1115 kg

DRUGS (1)
  1. CHANTIX [Suspect]
     Indication: SMOKING CESSATION THERAPY
     Dosage: 1MG TWICE DAILY PO
     Route: 048
     Dates: start: 20080217, end: 20080304

REACTIONS (5)
  - AGITATION [None]
  - HOMICIDAL IDEATION [None]
  - IRRITABILITY [None]
  - SUICIDAL IDEATION [None]
  - THINKING ABNORMAL [None]
